FAERS Safety Report 8545661-0 (Version None)
Quarter: 2012Q3

REPORT INFORMATION
  Report Type: 
  Country: None (occurrence: None)
  Receive Date: 20120727
  Receipt Date: 20120723
  Transmission Date: 20120928
  Serious: Yes (Life-Threatening, Other)
  Sender: FDA-Public Use
  Company Number: US-ABBOTT-12P-163-0959450-00

PATIENT
  Sex: Female

DRUGS (2)
  1. HUMIRA [Suspect]
     Indication: RHEUMATOID ARTHRITIS
     Route: 050
     Dates: start: 20081014, end: 20100201
  2. HUMIRA [Suspect]
     Dates: start: 20100601, end: 20100731

REACTIONS (6)
  - B-CELL LYMPHOMA [None]
  - CENTRAL VENOUS CATHETERISATION [None]
  - MASS [None]
  - LYMPHADENOPATHY [None]
  - NEOPLASM MALIGNANT [None]
  - TOOTH ABSCESS [None]
